FAERS Safety Report 21805082 (Version 7)
Quarter: 2023Q4

REPORT INFORMATION
  Report Type: Report from Study
  Country: US (occurrence: US)
  Receive Date: 20230102
  Receipt Date: 20231013
  Transmission Date: 20240110
  Serious: No
  Sender: FDA-Public Use
  Company Number: US-002147023-NVSC2022US301800

PATIENT
  Age: 32 Year
  Sex: Male

DRUGS (1)
  1. KESIMPTA [Suspect]
     Active Substance: OFATUMUMAB
     Indication: Product used for unknown indication
     Dosage: 20 MG, QMO (OTHER DOSAGE 0.4 ML)
     Route: 058
     Dates: start: 20220919

REACTIONS (4)
  - Insomnia [Not Recovered/Not Resolved]
  - Nocturia [Not Recovered/Not Resolved]
  - Product supply issue [Recovering/Resolving]
  - Device leakage [Unknown]

NARRATIVE: CASE EVENT DATE: 20221224
